FAERS Safety Report 7676493-3 (Version None)
Quarter: 2011Q3

REPORT INFORMATION
  Report Type: 
  Country: None (occurrence: None)
  Receive Date: 20110811
  Receipt Date: 20110728
  Transmission Date: 20111222
  Serious: Yes (Other)
  Sender: FDA-Public Use
  Company Number: SE-UCBSA-038037

PATIENT
  Sex: Female

DRUGS (1)
  1. KEPPRA [Suspect]

REACTIONS (6)
  - DEPRESSION [None]
  - SKIN STRIAE [None]
  - SELF INJURIOUS BEHAVIOUR [None]
  - WEIGHT INCREASED [None]
  - SUICIDAL IDEATION [None]
  - AGGRESSION [None]
